FAERS Safety Report 9589243 (Version 1)
Quarter: 2013Q4

REPORT INFORMATION
  Report Type: Spontaneous
  Country: US (occurrence: US)
  Receive Date: 20131003
  Receipt Date: 20131003
  Transmission Date: 20140711
  Serious: No
  Sender: FDA-Public Use
  Company Number: US-AMGEN-USASP2012069387

PATIENT
  Sex: Female

DRUGS (5)
  1. ENBREL [Suspect]
     Indication: PSORIASIS
     Dosage: 50 MG/ML, QWK
     Route: 058
  2. MULTIVITAMIN                       /07504101/ [Concomitant]
     Dosage: UNK
  3. VITAMIN D3 [Concomitant]
     Dosage: UNK
  4. BIOTIN [Concomitant]
     Dosage: 5 MG, UNK
  5. MELATONIN [Concomitant]
     Dosage: 1 MG, UNK

REACTIONS (1)
  - Chest pain [Unknown]
